FAERS Safety Report 7966924-3 (Version None)
Quarter: 2011Q4

REPORT INFORMATION
  Report Type: 
  Country: None (occurrence: None)
  Receive Date: 20111209
  Receipt Date: 20111205
  Transmission Date: 20120403
  Serious: Yes (Other)
  Sender: FDA-Public Use
  Company Number: US-PFIZER INC-2011296728

PATIENT
  Sex: Female
  Weight: 74.4 kg

DRUGS (2)
  1. HYDROCHLOROTHIAZIDE [Concomitant]
     Dosage: UNK
  2. AROMASIN [Suspect]
     Indication: BREAST CANCER
     Dosage: 25 MG, 1X/DAY
     Route: 048
     Dates: start: 20110801

REACTIONS (1)
  - GRANULOMATOUS PNEUMONITIS [None]
